FAERS Safety Report 6907273-1 (Version None)
Quarter: 2010Q3

REPORT INFORMATION
  Report Type: 
  Country: None (occurrence: None)
  Receive Date: 20100804
  Receipt Date: 20100728
  Transmission Date: 20110219
  Serious: Yes (Hospitalization, Other)
  Sender: FDA-Public Use
  Company Number: IT-AMGEN-QUU416560

PATIENT
  Sex: Male

DRUGS (8)
  1. ARANESP [Suspect]
     Indication: RENAL FAILURE CHRONIC
     Route: 042
     Dates: start: 20080830, end: 20100403
  2. ACTRAPID HUMAN [Concomitant]
  3. LANTHANUM CARBONATE [Concomitant]
     Route: 048
  4. CARDURA [Concomitant]
     Route: 048
  5. LASIX [Concomitant]
     Route: 048
  6. CATAPRES-TTS-1 [Concomitant]
  7. ASPIRIN [Concomitant]
     Route: 048
  8. UNSPECIFIED MEDICATION [Concomitant]
     Route: 048

REACTIONS (2)
  - ANAEMIA [None]
  - MYOCARDIAL INFARCTION [None]
